FAERS Safety Report 5479972-2 (Version None)
Quarter: 2007Q4

REPORT INFORMATION
  Report Type: 
  Country: None (occurrence: None)
  Receive Date: 20071008
  Receipt Date: 20071003
  Transmission Date: 20080405
  Serious: Yes (Other)
  Sender: FDA-Public Use
  Company Number: GB-MERCK-0710GBR00014

PATIENT
  Sex: Male

DRUGS (7)
  1. ZOCOR [Suspect]
     Indication: BLOOD CHOLESTEROL INCREASED
     Route: 048
     Dates: start: 20061001
  2. AMLODIPINE BESYLATE [Concomitant]
     Route: 048
  3. ASPIRIN [Concomitant]
     Route: 048
  4. INDAPAMIDE [Concomitant]
     Route: 048
  5. LISINOPRIL [Concomitant]
     Route: 048
  6. NEBIVOLOL [Concomitant]
     Route: 048
  7. OXAZEPAM [Concomitant]
     Route: 048

REACTIONS (1)
  - CONVULSION [None]
